FAERS Safety Report 20097610 (Version 1)
Quarter: 2021Q4

REPORT INFORMATION
  Report Type: Spontaneous
  Country: US (occurrence: None)
  Receive Date: 20211121
  Receipt Date: 20211121
  Transmission Date: 20220303
  Serious: No
  Sender: FDA-Public Use
  Company Number: None

PATIENT
  Age: 59 Year
  Sex: Female
  Weight: 93.96 kg

DRUGS (13)
  1. RYBELSUS [Suspect]
     Active Substance: SEMAGLUTIDE
     Indication: Type 2 diabetes mellitus
     Dosage: OTHER QUANTITY : 1 CAPSULE(S);?FREQUENCY : DAILY;?
     Route: 048
     Dates: start: 20211109, end: 20211117
  2. IC LISINOPRIL [Concomitant]
  3. ARNUITY ELLIPTA [Concomitant]
     Active Substance: FLUTICASONE FUROATE
  4. ELESTRIN (ESTRADIOL GEL) [Concomitant]
  5. ATORVASTATIN CALCIUM [Concomitant]
  6. IC ALBUTEROL SULFATE HFA [Concomitant]
  7. TAZORAC (TAZAROTENE) [Concomitant]
  8. ALLER-ZYR CETIRIZINE HYDROCHLORIDE [Concomitant]
  9. ALLER-FLO FLUTICASONE PROPIONATE (GLUTOCORTICOID) [Concomitant]
  10. NATURE^S BOUNTY WOMEN^S MULTIVITAMIN GUMMIES WITH COLLAGEN [Concomitant]
  11. NATURE^S BOUNTY B-12 GUMMIES [Concomitant]
  12. NATURE^S BOUNTY ELDERBERRY GUMMIES WITH VITAMIN D, C, + ZINC [Concomitant]
  13. PEPCID AC [Concomitant]
     Active Substance: FAMOTIDINE

REACTIONS (4)
  - Nausea [None]
  - Vomiting projectile [None]
  - Retching [None]
  - Diarrhoea [None]

NARRATIVE: CASE EVENT DATE: 20211118
